FAERS Safety Report 17929652 (Version 1)
Quarter: 2020Q2

REPORT INFORMATION
  Report Type: Spontaneous
  Country: US (occurrence: US)
  Receive Date: 20200623
  Receipt Date: 20200623
  Transmission Date: 20200714
  Serious: No
  Sender: FDA-Public Use
  Company Number: US-PFIZER INC-2020238379

PATIENT
  Age: 59 Year
  Sex: Female
  Weight: 115.2 kg

DRUGS (5)
  1. L-METHYLFOLATE [Suspect]
     Active Substance: LEVOMEFOLIC ACID
     Dosage: UNK
     Dates: start: 20190418
  2. AJOVY [Suspect]
     Active Substance: FREMANEZUMAB-VFRM
     Dosage: UNK
     Dates: start: 20190418
  3. TRAZODONE [Suspect]
     Active Substance: TRAZODONE HYDROCHLORIDE
     Dosage: UNK
     Dates: start: 20190418
  4. CODEINE [Suspect]
     Active Substance: CODEINE
     Dosage: UNK
     Dates: start: 20190418
  5. LYRICA [Suspect]
     Active Substance: PREGABALIN
     Dosage: UNK
     Dates: start: 20190418

REACTIONS (4)
  - Drug hypersensitivity [Unknown]
  - Migraine [Unknown]
  - Nausea [Unknown]
  - Dizziness [Unknown]
